FAERS Safety Report 8460262-0 (Version None)
Quarter: 2012Q2

REPORT INFORMATION
  Report Type: 
  Country: None (occurrence: None)
  Receive Date: 20120323
  Receipt Date: 20110912
  Transmission Date: 20120825
  Serious: Yes (Hospitalization, Other)
  Sender: FDA-Public Use
  Company Number: 163-21880-11091652

PATIENT
  Age: 56 Year
  Sex: Male

DRUGS (1)
  1. REVLIMID [Suspect]
     Indication: MULTIPLE MYELOMA
     Dosage: 25 MG, QD 21/28, PO
     Route: 048
     Dates: start: 20110826

REACTIONS (3)
  - RENAL FAILURE [None]
  - LEUKAEMIA PLASMACYTIC [None]
  - CEREBRAL HAEMORRHAGE [None]
